FAERS Safety Report 8064502-1 (Version None)
Quarter: 2012Q1

REPORT INFORMATION
  Report Type: 
  Country: None (occurrence: None)
  Receive Date: 20120123
  Receipt Date: 20120118
  Transmission Date: 20120608
  Serious: Yes (Other)
  Sender: FDA-Public Use
  Company Number: US-ASTRAZENECA-2010SE37677

PATIENT
  Age: 78 Year
  Sex: Female

DRUGS (2)
  1. METFORMIN HYDROCHLORIDE [Concomitant]
  2. ARIMIDEX [Suspect]
     Indication: BREAST CANCER
     Route: 048
     Dates: start: 20080101

REACTIONS (6)
  - NEOPLASM MALIGNANT [None]
  - DIABETES MELLITUS [None]
  - BREAST SWELLING [None]
  - CATARACT [None]
  - NAUSEA [None]
  - BREAST PAIN [None]
